FAERS Safety Report 7700599-3 (Version None)
Quarter: 2011Q3

REPORT INFORMATION
  Report Type: 
  Country: None (occurrence: None)
  Receive Date: 20110822
  Receipt Date: 20110819
  Transmission Date: 20111222
  Serious: Yes (Hospitalization, Other)
  Sender: FDA-Public Use
  Company Number: US-PFIZER INC-2011192496

PATIENT
  Sex: Male
  Weight: 107 kg

DRUGS (3)
  1. CHANTIX [Suspect]
     Indication: SMOKING CESSATION THERAPY
     Dosage: UNK
     Route: 048
     Dates: end: 20110630
  2. LISINOPRIL [Concomitant]
     Indication: HYPERTENSION
     Dosage: UNK
  3. PROPECIA [Concomitant]
     Indication: ALOPECIA
     Dosage: UNK
     Dates: start: 20070101

REACTIONS (4)
  - PAIN [None]
  - ROAD TRAFFIC ACCIDENT [None]
  - SYNCOPE [None]
  - INJURY [None]
